FAERS Safety Report 9496317 (Version 2)
Quarter: 2013Q3

REPORT INFORMATION
  Report Type: Report from Study
  Country: US (occurrence: US)
  Receive Date: 20130904
  Receipt Date: 20130904
  Transmission Date: 20140515
  Serious: Yes (Death, Other)
  Sender: FDA-Public Use
  Company Number: US-CELGENEUS-163-20785-13023989

PATIENT
  Age: 76 Year
  Sex: Male

DRUGS (20)
  1. THALOMID [Suspect]
     Indication: PLASMA CELL MYELOMA
     Dosage: 50 MILLIGRAM
     Route: 048
     Dates: start: 2006, end: 20061204
  2. THALOMID [Suspect]
     Dosage: 50 MILLIGRAM
     Route: 048
     Dates: start: 201006, end: 2012
  3. THALOMID [Suspect]
     Dosage: 50 MILLIGRAM
     Route: 048
     Dates: start: 201210, end: 20121217
  4. REVLIMID [Suspect]
     Indication: PLASMA CELL MYELOMA
     Dosage: 5 MILLIGRAM
     Route: 048
     Dates: start: 200908, end: 2009
  5. REVLIMID [Suspect]
     Dosage: 10 MILLIGRAM
     Route: 048
     Dates: start: 200910, end: 201003
  6. REVLIMID [Suspect]
     Dosage: 25 MILLIGRAM
     Route: 048
     Dates: start: 201004, end: 201005
  7. REVLIMID [Suspect]
     Dosage: 5 MILLIGRAM
     Route: 048
     Dates: start: 201103, end: 201205
  8. VELCADE [Suspect]
     Indication: PLASMA CELL MYELOMA
     Dosage: 1 MILLIGRAM/SQ. METER
     Route: 065
     Dates: start: 201006
  9. VELCADE [Suspect]
     Route: 065
     Dates: start: 20121018, end: 20121217
  10. DEXAMETHASONE [Suspect]
     Indication: PLASMA CELL MYELOMA
     Dosage: 12 MILLIGRAM
     Route: 065
     Dates: start: 201006
  11. DEXAMETHASONE [Suspect]
     Dosage: 8 MILLIGRAM
     Route: 065
     Dates: start: 201107
  12. DEXAMETHASONE [Suspect]
     Dosage: 1.7143 MILLIGRAM
     Route: 065
     Dates: start: 20121110, end: 20121217
  13. ADRIAMYCIN [Suspect]
     Indication: PLASMA CELL MYELOMA
     Route: 065
     Dates: start: 20121018, end: 20121217
  14. CYCLOPHOSPHAMIDE [Suspect]
     Indication: PLASMA CELL MYELOMA
     Route: 065
     Dates: start: 20121018, end: 20121217
  15. CISPLATIN [Suspect]
     Indication: PLASMA CELL MYELOMA
     Route: 065
     Dates: start: 20121110, end: 20121217
  16. ETOPOSIDE [Suspect]
     Indication: PLASMA CELL MYELOMA
     Route: 065
     Dates: start: 20121018, end: 20121217
  17. MELPHALAN [Suspect]
     Indication: PLASMA CELL MYELOMA
     Route: 065
     Dates: start: 2004, end: 2004
  18. MELPHALAN [Suspect]
     Dates: start: 20121018, end: 20121217
  19. ZOMETA [Concomitant]
     Indication: PRODUCT USED FOR UNKNOWN INDICATION
     Dosage: 1 MILLIGRAM
     Route: 065
     Dates: start: 201208
  20. IVIG [Concomitant]
     Indication: PLASMA CELL MYELOMA
     Route: 065
     Dates: start: 20121018

REACTIONS (3)
  - Plasma cell myeloma [Fatal]
  - Acute myeloid leukaemia [Fatal]
  - Neuropathy peripheral [Unknown]
